FAERS Safety Report 13210947 (Version 1)
Quarter: 2017Q1

REPORT INFORMATION
  Report Type: Spontaneous
  Country: US (occurrence: US)
  Receive Date: 20170210
  Receipt Date: 20170210
  Transmission Date: 20170428
  Serious: Yes (Hospitalization)
  Sender: FDA-Public Use
  Company Number: None

PATIENT
  Age: 6 Year
  Sex: Male
  Weight: 30.3 kg

DRUGS (4)
  1. TRISENOX [Suspect]
     Active Substance: ARSENIC TRIOXIDE
     Dates: end: 20170206
  2. HYDROXYUREA. [Suspect]
     Active Substance: HYDROXYUREA
     Dates: end: 20170209
  3. TRETINOIN (ALL-TRANS RETINOIC ACID, ATRA) [Suspect]
     Active Substance: TRETINOIN
     Dates: end: 20170206
  4. DEXAMETHASONE. [Suspect]
     Active Substance: DEXAMETHASONE
     Dates: end: 20170209

REACTIONS (9)
  - Pulmonary oedema [None]
  - Haemorrhage [None]
  - Renal injury [None]
  - Hypertension [None]
  - Haemodialysis [None]
  - Hypotension [None]
  - Acute respiratory distress syndrome [None]
  - Thrombophlebitis [None]
  - Disseminated intravascular coagulation [None]

NARRATIVE: CASE EVENT DATE: 20170209
